FAERS Safety Report 19074683 (Version 1)
Quarter: 2021Q1

REPORT INFORMATION
  Report Type: Spontaneous
  Country: US (occurrence: US)
  Receive Date: 20210330
  Receipt Date: 20210330
  Transmission Date: 20210420
  Serious: No
  Sender: FDA-Public Use
  Company Number: US-ROCHE-2716859

PATIENT
  Age: 79 Year
  Sex: Male

DRUGS (1)
  1. ERIVEDGE [Suspect]
     Active Substance: VISMODEGIB
     Indication: BASAL CELL CARCINOMA
     Dosage: STARTED A LITTLE OVER 2 MONTHS AGO ;ONGOING: NO
     Route: 048
     Dates: start: 202009

REACTIONS (1)
  - Muscle spasms [Not Recovered/Not Resolved]
